FAERS Safety Report 22688954 (Version 2)
Quarter: 2023Q4

REPORT INFORMATION
  Report Type: Spontaneous
  Country: US (occurrence: US)
  Receive Date: 20230710
  Receipt Date: 20231011
  Transmission Date: 20240110
  Serious: Yes (Other)
  Sender: FDA-Public Use
  Company Number: US-LUNDBECK-DKLU3064542

PATIENT
  Age: 20 Year
  Sex: Male

DRUGS (4)
  1. ONFI [Suspect]
     Active Substance: CLOBAZAM
     Indication: Tonic convulsion
     Route: 065
     Dates: start: 202107
  2. ONFI [Suspect]
     Active Substance: CLOBAZAM
     Indication: Myoclonic epilepsy
     Route: 065
     Dates: start: 2022
  3. ONFI [Suspect]
     Active Substance: CLOBAZAM
     Indication: Epilepsy
  4. ZONISAMIDE [Concomitant]
     Active Substance: ZONISAMIDE
     Indication: Product used for unknown indication
     Route: 065

REACTIONS (2)
  - Intentional self-injury [Unknown]
  - Seizure [Unknown]

NARRATIVE: CASE EVENT DATE: 20230704
